FAERS Safety Report 9304132 (Version 1)
Quarter: 2013Q2

REPORT INFORMATION
  Report Type: Spontaneous
  Country: US (occurrence: US)
  Receive Date: 20130522
  Receipt Date: 20130522
  Transmission Date: 20140414
  Serious: No
  Sender: FDA-Public Use
  Company Number: US-COVIDIEN/TYCO HEALTHCARE/MALLINCKRODT-T201301863

PATIENT
  Age: 62 Year
  Sex: Female

DRUGS (2)
  1. GABLOFEN [Suspect]
     Indication: MUSCLE SPASTICITY
     Dosage: UNK
     Route: 037
  2. BACLOFEN [Concomitant]
     Route: 048

REACTIONS (4)
  - Dyskinesia [Unknown]
  - Muscle spasticity [Unknown]
  - Insomnia [Unknown]
  - Product quality issue [Unknown]
